FAERS Safety Report 23513453 (Version 1)
Quarter: 2024Q1

REPORT INFORMATION
  Report Type: Spontaneous
  Country: FR (occurrence: FR)
  Receive Date: 20240212
  Receipt Date: 20240212
  Transmission Date: 20240409
  Serious: Yes (Other)
  Sender: FDA-Public Use
  Company Number: None

PATIENT
  Age: 96 Year
  Sex: Male
  Weight: 70 kg

DRUGS (20)
  1. FUROSEMIDE [Suspect]
     Active Substance: FUROSEMIDE
     Indication: Cardiac failure
     Dosage: 80 MILLIGRAM, QD
     Route: 048
     Dates: start: 20231219, end: 20231222
  2. FUROSEMIDE [Suspect]
     Active Substance: FUROSEMIDE
     Dosage: 40 MILLIGRAM, QD
     Route: 048
     Dates: end: 20231214
  3. FUROSEMIDE [Suspect]
     Active Substance: FUROSEMIDE
     Dosage: 60 MILLIGRAM, QD
     Route: 048
     Dates: start: 20231214, end: 20231219
  4. FUROSEMIDE [Suspect]
     Active Substance: FUROSEMIDE
     Dosage: 60 MILLIGRAM, QD
     Route: 048
     Dates: start: 20231222, end: 20231227
  5. LEVOFLOXACIN [Suspect]
     Active Substance: LEVOFLOXACIN
     Indication: Prosthetic valve endocarditis
     Dosage: 1 GRAM, QD
     Route: 042
     Dates: start: 20231219, end: 20231227
  6. CEFAZOLIN [Suspect]
     Active Substance: CEFAZOLIN
     Indication: Prosthetic valve endocarditis
     Dosage: 7 GRAM, QD
     Route: 042
     Dates: start: 20231212, end: 20231227
  7. CEFAZOLIN [Suspect]
     Active Substance: CEFAZOLIN
     Dosage: 2 GRAM
     Route: 042
     Dates: start: 20231212, end: 20231212
  8. CEFAZOLIN [Suspect]
     Active Substance: CEFAZOLIN
     Dosage: 3 GRAM, QD
     Route: 042
     Dates: start: 20231227
  9. IRBESARTAN [Suspect]
     Active Substance: IRBESARTAN
     Indication: Hypertension
     Dosage: 300 MILLIGRAM, QD
     Route: 048
     Dates: end: 20231221
  10. ELIQUIS [Suspect]
     Active Substance: APIXABAN
     Indication: Thrombosis prophylaxis
     Dosage: 5 MILLIGRAM, QD
     Route: 048
     Dates: end: 20231227
  11. SKENAN [Concomitant]
     Active Substance: MORPHINE SULFATE
     Dosage: 20 MILLIGRAM, QD
     Route: 048
     Dates: start: 20231222
  12. TRAMADOL [Concomitant]
     Active Substance: TRAMADOL\TRAMADOL HYDROCHLORIDE
     Dosage: 150 MILLIGRAM, QD
     Route: 048
  13. OXAZEPAM [Concomitant]
     Active Substance: OXAZEPAM
     Dosage: 10 MILLIGRAM, QD
     Route: 048
     Dates: start: 20231226
  14. LERCANIDIPINE HYDROCHLORIDE [Concomitant]
     Active Substance: LERCANIDIPINE HYDROCHLORIDE
     Dosage: 10 MILLIGRAM, QD
     Route: 048
  15. MORPHINE SULFATE [Concomitant]
     Active Substance: MORPHINE SULFATE
     Dosage: 5 MILLIGRAM 1ASNECESSARY
     Route: 048
     Dates: start: 20231222
  16. LACTULOSE [Concomitant]
     Active Substance: LACTULOSE
     Dosage: 2 DOSAGE FORM, QD
     Route: 048
  17. TINZAPARIN SODIUM [Concomitant]
     Active Substance: TINZAPARIN SODIUM
     Dosage: 175 INTERNATIONAL UNIT, QD
     Route: 058
     Dates: start: 20231227
  18. LANSOPRAZOLE [Concomitant]
     Active Substance: LANSOPRAZOLE
     Dosage: 15 MILLIGRAM, QD
     Route: 048
  19. AMIODARONE [Concomitant]
     Active Substance: AMIODARONE
     Dosage: 1000 MILLIGRAM, QW
     Route: 048
  20. POTASSIUM CHLORIDE [Concomitant]
     Active Substance: POTASSIUM CHLORIDE
     Dosage: UNK
     Route: 048

REACTIONS (1)
  - Acute kidney injury [Recovered/Resolved]

NARRATIVE: CASE EVENT DATE: 20231221
